FAERS Safety Report 25862584 (Version 2)
Quarter: 2025Q4

REPORT INFORMATION
  Report Type: Spontaneous
  Country: JP (occurrence: JP)
  Receive Date: 20250930
  Receipt Date: 20251030
  Transmission Date: 20260118
  Serious: Yes (Death)
  Sender: AMGEN
  Company Number: JP-AMGEN-JPNSP2025191354

PATIENT

DRUGS (4)
  1. MVASI [Suspect]
     Active Substance: BEVACIZUMAB-AWWB
     Indication: Ovarian cancer
     Dosage: UNK, MAINTENANCE (DRIP INFUSION)
     Route: 040
  2. MVASI [Suspect]
     Active Substance: BEVACIZUMAB-AWWB
     Indication: Gene mutation
  3. OLAPARIB [Concomitant]
     Active Substance: OLAPARIB
     Indication: Ovarian cancer
     Dosage: MAINTENANCE
     Route: 065
  4. OLAPARIB [Concomitant]
     Active Substance: OLAPARIB
     Indication: BRCA1 gene mutation

REACTIONS (2)
  - Ovarian cancer [Fatal]
  - Proteinuria [Unknown]
